FAERS Safety Report 8492825-0 (Version None)
Quarter: 2012Q3

REPORT INFORMATION
  Report Type: 
  Country: None (occurrence: None)
  Receive Date: 20120706
  Receipt Date: 20120627
  Transmission Date: 20120928
  Serious: Yes (Other)
  Sender: FDA-Public Use
  Company Number: CA-JNJFOC-20120614184

PATIENT
  Sex: Female
  Weight: 105.7 kg

DRUGS (7)
  1. REMICADE [Suspect]
     Indication: CROHN'S DISEASE
     Route: 042
  2. CRESTOR [Concomitant]
     Route: 065
  3. PROZAC [Concomitant]
     Route: 065
  4. METFORMIN HCL [Concomitant]
     Route: 065
  5. WELLBUTRIN [Concomitant]
     Route: 065
  6. ATACAND [Concomitant]
     Route: 065
  7. ASPIRIN [Concomitant]
     Route: 065

REACTIONS (1)
  - NEPHROLITHIASIS [None]
